FAERS Safety Report 6859781-X (Version None)
Quarter: 2010Q3

REPORT INFORMATION
  Report Type: 
  Country: None (occurrence: None)
  Receive Date: 20100720
  Receipt Date: 20100713
  Transmission Date: 20110219
  Serious: Yes (Death, Other)
  Sender: FDA-Public Use
  Company Number: IN-ELI_LILLY_AND_COMPANY-IN201006006570

PATIENT
  Age: 3 Year
  Sex: Female

DRUGS (1)
  1. HUMATROPE [Suspect]
     Indication: GROWTH HORMONE DEFICIENCY
     Dosage: 36 IU, UNK
     Route: 065
     Dates: start: 20090101

REACTIONS (2)
  - PNEUMONIA ASPIRATION [None]
  - VOMITING [None]
